FAERS Safety Report 9102675 (Version 1)
Quarter: 2013Q1

REPORT INFORMATION
  Report Type: Spontaneous
  Country: US (occurrence: US)
  Receive Date: 20130219
  Receipt Date: 20130219
  Transmission Date: 20140127
  Serious: No
  Sender: FDA-Public Use
  Company Number: US-VERTEX PHARMACEUTICALS INC.-2013-002145

PATIENT
  Age: 57 None
  Sex: Male
  Weight: 113 kg

DRUGS (3)
  1. INCIVEK [Suspect]
     Indication: HEPATITIS C
     Dosage: 750 MG, TID
     Route: 048
     Dates: start: 20121123
  2. PEGASYS [Suspect]
     Indication: HEPATITIS C
     Dosage: 180 ?G, QW
     Route: 058
     Dates: start: 20121123
  3. RIBAPAK [Suspect]
     Indication: HEPATITIS C
     Dosage: 600MG AM, 400MG PM
     Route: 048
     Dates: start: 20121123

REACTIONS (11)
  - Bronchitis [Recovered/Resolved]
  - Nephrolithiasis [Recovered/Resolved]
  - Dysuria [Recovered/Resolved]
  - Abdominal pain [Recovered/Resolved]
  - Dry skin [Recovered/Resolved]
  - Rash [Recovered/Resolved]
  - Rectal haemorrhage [Recovered/Resolved]
  - Pruritus [Recovered/Resolved]
  - Proctalgia [Recovered/Resolved]
  - Diarrhoea [Recovered/Resolved]
  - Anorectal discomfort [Unknown]
